FAERS Safety Report 16089131 (Version 1)
Quarter: 2019Q1

REPORT INFORMATION
  Report Type: Spontaneous
  Country: US (occurrence: US)
  Receive Date: 20190319
  Receipt Date: 20190319
  Transmission Date: 20190418
  Serious: Yes (Hospitalization, Other)
  Sender: FDA-Public Use
  Company Number: US-ELI_LILLY_AND_COMPANY-US201903008603

PATIENT
  Sex: Female

DRUGS (2)
  1. LEVEMIR [Concomitant]
     Active Substance: INSULIN DETEMIR
     Indication: TYPE 2 DIABETES MELLITUS
     Dosage: UNK UNK, UNKNOWN (26)
  2. HUMALOG [Suspect]
     Active Substance: INSULIN LISPRO
     Indication: TYPE 2 DIABETES MELLITUS
     Dosage: 16 IU, PRN (PLUS COVERAGE AS NEEDED)
     Route: 058
     Dates: start: 2018

REACTIONS (11)
  - Hypertension [Recovering/Resolving]
  - Glycosylated haemoglobin increased [Recovering/Resolving]
  - Cerebrovascular accident [Recovering/Resolving]
  - Post-traumatic stress disorder [Recovering/Resolving]
  - Aphasia [Recovering/Resolving]
  - Blood cholesterol increased [Recovering/Resolving]
  - Blood glucose abnormal [Recovering/Resolving]
  - Confusional state [Recovering/Resolving]
  - Cerebrovascular accident [Recovering/Resolving]
  - Amnesia [Recovering/Resolving]
  - Product dose omission [Unknown]

NARRATIVE: CASE EVENT DATE: 20190103
